FAERS Safety Report 18300928 (Version 1)
Quarter: 2020Q3

REPORT INFORMATION
  Report Type: Spontaneous
  Country: US (occurrence: US)
  Receive Date: 20200923
  Receipt Date: 20200923
  Transmission Date: 20201103
  Serious: Yes (Hospitalization)
  Sender: FDA-Public Use
  Company Number: None

PATIENT
  Age: 71 Year
  Sex: Male
  Weight: 98 kg

DRUGS (1)
  1. FONDAPARINUX (FONDAPARINUX NA 10MG/0.8ML INJ, SYRINGE, 0.8ML) [Suspect]
     Active Substance: FONDAPARINUX SODIUM
     Route: 058
     Dates: start: 20160901, end: 20200804

REACTIONS (5)
  - Pain in extremity [None]
  - Treatment failure [None]
  - Pulmonary embolism [None]
  - Chest discomfort [None]
  - Dyspnoea [None]

NARRATIVE: CASE EVENT DATE: 20200804
